FAERS Safety Report 8371004-1 (Version None)
Quarter: 2012Q2

REPORT INFORMATION
  Report Type: 
  Country: None (occurrence: None)
  Receive Date: 20120518
  Receipt Date: 20120508
  Transmission Date: 20120825
  Serious: Yes (Other)
  Sender: FDA-Public Use
  Company Number: US-ABBOTT-12P-163-0933765-00

PATIENT
  Age: 67 Year
  Sex: Male

DRUGS (6)
  1. NEXIUM [Concomitant]
     Indication: PRODUCT USED FOR UNKNOWN INDICATION
  2. CELEBREX [Concomitant]
     Indication: PRODUCT USED FOR UNKNOWN INDICATION
  3. BYSTOLIC [Concomitant]
     Indication: HYPERTENSION
  4. HUMIRA [Suspect]
     Indication: PSORIASIS
     Dates: start: 20111201
  5. BUPROPRION HCL [Concomitant]
     Indication: PRODUCT USED FOR UNKNOWN INDICATION
  6. CRESTOR [Concomitant]
     Indication: PRODUCT USED FOR UNKNOWN INDICATION

REACTIONS (8)
  - INFECTION [None]
  - BILIARY DILATATION [None]
  - PYREXIA [None]
  - BILE DUCT OBSTRUCTION [None]
  - BILIARY COLIC [None]
  - STAPHYLOCOCCAL INFECTION [None]
  - CHILLS [None]
  - BLOOD BILIRUBIN INCREASED [None]
